FAERS Safety Report 9132410 (Version 1)
Quarter: 2013Q1

REPORT INFORMATION
  Report Type: Spontaneous
  Country: FR (occurrence: FR)
  Receive Date: 20130107
  Receipt Date: 20130107
  Transmission Date: 20140127
  Serious: Yes (Hospitalization)
  Sender: FDA-Public Use
  Company Number: FR-GLAXOSMITHKLINE-B0855221A

PATIENT
  Age: 64 Year
  Sex: Female

DRUGS (3)
  1. MALARONE [Suspect]
     Indication: MALARIA PROPHYLAXIS
     Route: 048
     Dates: start: 20121109, end: 20121116
  2. SULFAMETHOXAZOLE + TRIMETHOPRIM [Suspect]
     Indication: VOMITING
     Dates: start: 20121113, end: 20121118
  3. LEVOTHYROX [Concomitant]

REACTIONS (5)
  - Pancreatitis acute [Recovering/Resolving]
  - Chills [Recovered/Resolved]
  - Vomiting [Recovering/Resolving]
  - Diarrhoea [Recovering/Resolving]
  - Pain [Recovered/Resolved]
